FAERS Safety Report 12245844 (Version 1)
Quarter: 2016Q2

REPORT INFORMATION
  Report Type: Spontaneous
  Country: US (occurrence: US)
  Receive Date: 20160407
  Receipt Date: 20160407
  Transmission Date: 20160815
  Serious: No
  Sender: FDA-Public Use
  Company Number: US-WATSON-2015-25740

PATIENT

DRUGS (1)
  1. TOPIRAMATE (WATSON LABORATORIES) [Suspect]
     Active Substance: TOPIRAMATE
     Indication: PRODUCT USED FOR UNKNOWN INDICATION
     Dosage: UNK, UNKNOWN
     Route: 065

REACTIONS (2)
  - Anxiety [Unknown]
  - Hypohidrosis [Unknown]
